FAERS Safety Report 5181093-3 (Version None)
Quarter: 2006Q4

REPORT INFORMATION
  Report Type: 
  Country: None (occurrence: None)
  Receive Date: 20061220
  Receipt Date: 20061129
  Transmission Date: 20070319
  Serious: Yes (Other)
  Sender: FDA-Public Use
  Company Number: PHHO2006CL20257

PATIENT
  Age: 40 Year
  Sex: Female

DRUGS (1)
  1. ZELMAC / HTF 919A [Suspect]
     Indication: IRRITABLE BOWEL SYNDROME
     Dosage: 6 MG, QD
     Route: 048

REACTIONS (3)
  - ABDOMINAL PAIN [None]
  - DIVERTICULUM INTESTINAL [None]
  - GASTROINTESTINAL EROSION [None]
